FAERS Safety Report 5451745-6 (Version None)
Quarter: 2007Q3

REPORT INFORMATION
  Report Type: 
  Country: None (occurrence: None)
  Receive Date: 20070913
  Receipt Date: 20070903
  Transmission Date: 20080115
  Serious: Yes (Hospitalization, Disabling, Other)
  Sender: FDA-Public Use
  Company Number: FR-ABBOTT-07P-056-0415951-00

PATIENT
  Sex: Male
  Weight: 75 kg

DRUGS (13)
  1. NORVIR [Suspect]
     Indication: DRUG USE FOR UNKNOWN INDICATION
     Route: 048
     Dates: start: 20050501
  2. QUININE/THIAMINE [Suspect]
     Indication: MUSCLE SPASMS
     Route: 048
     Dates: end: 20070823
  3. ATAZANAVIR SULFATE [Suspect]
     Indication: DRUG USE FOR UNKNOWN INDICATION
     Route: 048
     Dates: start: 20050501, end: 20070716
  4. TENOFOVIR DISOPROXIL FUMARATE [Suspect]
     Indication: DRUG USE FOR UNKNOWN INDICATION
     Route: 048
     Dates: start: 20050501
  5. EMTRICITABINE [Suspect]
     Indication: DRUG USE FOR UNKNOWN INDICATION
     Route: 048
     Dates: start: 20050501
  6. ACETYLSALICYLATE DL-LYSINE [Concomitant]
     Indication: DRUG USE FOR UNKNOWN INDICATION
     Dates: start: 20050401
  7. BACLOFENE [Concomitant]
     Indication: DRUG USE FOR UNKNOWN INDICATION
     Dates: start: 20050401
  8. PILOCARPINE [Concomitant]
     Indication: DRUG USE FOR UNKNOWN INDICATION
  9. INSULINE [Concomitant]
     Indication: DRUG USE FOR UNKNOWN INDICATION
  10. MAGNESIUM B6 [Concomitant]
     Indication: DRUG USE FOR UNKNOWN INDICATION
  11. VALACYCLOVIR HCL [Concomitant]
     Indication: DRUG USE FOR UNKNOWN INDICATION
  12. KALETRA [Concomitant]
     Indication: DRUG USE FOR UNKNOWN INDICATION
     Route: 048
     Dates: start: 20070701
  13. EMTRICITABINE/TENOFOVIR DISOPROXIL [Concomitant]
     Indication: DRUG USE FOR UNKNOWN INDICATION
     Route: 048
     Dates: start: 20070701

REACTIONS (8)
  - ACTIVITIES OF DAILY LIVING IMPAIRED [None]
  - ANTINUCLEAR ANTIBODY POSITIVE [None]
  - BACK PAIN [None]
  - EPIDERMAL NECROSIS [None]
  - HAIR COLOUR CHANGES [None]
  - PHOTOSENSITIVITY REACTION [None]
  - REACTION TO DRUG EXCIPIENTS [None]
  - SKIN DEPIGMENTATION [None]
